FAERS Safety Report 13776052 (Version 1)
Quarter: 2017Q3

REPORT INFORMATION
  Report Type: Spontaneous
  Country: GB (occurrence: GB)
  Receive Date: 20170720
  Receipt Date: 20170720
  Transmission Date: 20171127
  Serious: Yes (Life-Threatening, Hospitalization)
  Sender: FDA-Public Use
  Company Number: GB-PFIZER INC-1816952

PATIENT
  Age: 41 Year
  Sex: Male

DRUGS (1)
  1. METHOTREXATE SODIUM. [Suspect]
     Active Substance: METHOTREXATE SODIUM
     Indication: SARCOIDOSIS
     Dosage: 2.5 MG, UNK
     Route: 048

REACTIONS (3)
  - Paraesthesia [Unknown]
  - Pharyngeal oedema [Unknown]
  - Paraesthesia oral [Unknown]
